FAERS Safety Report 22593711 (Version 7)
Quarter: 2023Q4

REPORT INFORMATION
  Report Type: Report from Study
  Country: JP (occurrence: JP)
  Receive Date: 20230613
  Receipt Date: 20231110
  Transmission Date: 20240110
  Serious: Yes (Death, Hospitalization, Other)
  Sender: FDA-Public Use
  Company Number: JP-GSKJP-JP2023JPN081717AA

PATIENT

DRUGS (7)
  1. DAPRODUSTAT [Suspect]
     Active Substance: DAPRODUSTAT
     Indication: Nephrogenic anaemia
     Dosage: 4 MG, 1D
     Route: 048
     Dates: start: 20200923, end: 20201019
  2. DAPRODUSTAT [Suspect]
     Active Substance: DAPRODUSTAT
     Dosage: 2 MG, 1D
     Route: 048
     Dates: start: 20201020, end: 20201103
  3. DAPRODUSTAT [Suspect]
     Active Substance: DAPRODUSTAT
     Dosage: 1 MG, 1D
     Route: 048
     Dates: start: 20201104, end: 20210111
  4. DAPRODUSTAT [Suspect]
     Active Substance: DAPRODUSTAT
     Dosage: 2 MG, 1D
     Route: 048
     Dates: start: 20210112, end: 20210208
  5. DAPRODUSTAT [Suspect]
     Active Substance: DAPRODUSTAT
     Dosage: 4 MG, 1D
     Route: 048
     Dates: start: 20210209, end: 20220405
  6. DAPRODUSTAT [Suspect]
     Active Substance: DAPRODUSTAT
     Dosage: 4 MG, 1D
     Route: 048
     Dates: start: 20220805
  7. WARFARIN POTASSIUM [Suspect]
     Active Substance: WARFARIN POTASSIUM
     Indication: Valvuloplasty cardiac
     Dosage: 2.5 MG, 1D
     Route: 048
     Dates: start: 2015, end: 20220424

REACTIONS (4)
  - Putamen haemorrhage [Fatal]
  - Chronic kidney disease [Fatal]
  - Product use issue [Unknown]
  - Off label use [Unknown]

NARRATIVE: CASE EVENT DATE: 20220424
